FAERS Safety Report 11784003 (Version 5)
Quarter: 2016Q2

REPORT INFORMATION
  Report Type: Report from Study
  Country: DE (occurrence: DE)
  Receive Date: 20151128
  Receipt Date: 20160603
  Transmission Date: 20160815
  Serious: Yes (Hospitalization, Other)
  Sender: FDA-Public Use
  Company Number: DE-BRISTOL-MYERS SQUIBB COMPANY-BMS-2015-061210

PATIENT
  Age: 66 Year
  Sex: Female
  Weight: 82 kg

DRUGS (1)
  1. APIXABAN [Suspect]
     Active Substance: APIXABAN
     Indication: CEREBROVASCULAR ACCIDENT PROPHYLAXIS
     Dosage: 5 MG, BID
     Route: 048
     Dates: start: 20130607, end: 20151006

REACTIONS (9)
  - Hypertension [Unknown]
  - Atrial flutter [Unknown]
  - Knee arthroplasty [Unknown]
  - Gingival bleeding [Unknown]
  - Atrial fibrillation [Unknown]
  - Arthralgia [Unknown]
  - Ventricular fibrillation [Unknown]
  - Anaemia postoperative [Unknown]
  - Post procedural haemorrhage [Unknown]

NARRATIVE: CASE EVENT DATE: 20150725
